FAERS Safety Report 22350480 (Version 1)
Quarter: 2023Q2

REPORT INFORMATION
  Report Type: Spontaneous
  Country: US (occurrence: None)
  Receive Date: 20230519
  Receipt Date: 20230519
  Transmission Date: 20230722
  Serious: Yes (Hospitalization)
  Sender: FDA-Public Use
  Company Number: None

PATIENT
  Age: 54 Year
  Sex: Male

DRUGS (3)
  1. TADALAFIL [Suspect]
     Active Substance: TADALAFIL
     Indication: Pulmonary arterial hypertension
     Dosage: FREQUENCY : DAILY;?
     Route: 048
     Dates: start: 202302
  2. UPTRAVI [Suspect]
     Active Substance: SELEXIPAG
  3. LETAIRIS [Suspect]
     Active Substance: AMBRISENTAN

REACTIONS (3)
  - Dizziness [None]
  - Imprisonment [None]
  - Hypotension [None]

NARRATIVE: CASE EVENT DATE: 20230515
